FAERS Safety Report 7281210-5 (Version None)
Quarter: 2011Q1

REPORT INFORMATION
  Report Type: 
  Country: None (occurrence: None)
  Receive Date: 20110203
  Receipt Date: 20110203
  Transmission Date: 20110831
  Serious: Yes (Other)
  Sender: FDA-Public Use
  Company Number: None

PATIENT
  Age: 64 Year
  Sex: Female
  Weight: 65.7716 kg

DRUGS (1)
  1. AZASITE [Suspect]
     Indication: BACTERIAL INFECTION
     Dosage: 1 DROP 1/DAY OPHTHALMIC
     Route: 047
     Dates: start: 20110127, end: 20110127

REACTIONS (6)
  - EYELID PAIN [None]
  - EYE SWELLING [None]
  - DRUG HYPERSENSITIVITY [None]
  - INSTILLATION SITE PAIN [None]
  - INSTILLATION SITE ERYTHEMA [None]
  - EYELID IRRITATION [None]
